FAERS Safety Report 8621672-1 (Version None)
Quarter: 2012Q3

REPORT INFORMATION
  Report Type: 
  Country: None (occurrence: None)
  Receive Date: 20120821
  Receipt Date: 20120821
  Transmission Date: 20120928
  Serious: Yes (Disabling)
  Sender: FDA-Public Use
  Company Number: None

PATIENT
  Age: 78 Year
  Sex: Female
  Weight: 62.1428 kg

DRUGS (2)
  1. ALENDRONATE SODIUM [Suspect]
     Indication: OSTEOPOROSIS
     Dosage: 1 TAB ONCE A WEEK PO
     Route: 048
     Dates: start: 20120722, end: 20120722
  2. ALENDRONATE SODIUM [Suspect]
     Indication: OSTEOPOROSIS
     Dosage: 1 TAB ONCE A WEEK PO
     Route: 048
     Dates: start: 20120715, end: 20120715

REACTIONS (2)
  - INFLUENZA LIKE ILLNESS [None]
  - ARTHRALGIA [None]
